FAERS Safety Report 5890998-7 (Version None)
Quarter: 2008Q3

REPORT INFORMATION
  Report Type: 
  Country: None (occurrence: None)
  Receive Date: 20080922
  Receipt Date: 20080910
  Transmission Date: 20090109
  Serious: Yes (Death)
  Sender: FDA-Public Use
  Company Number: B0536599A

PATIENT
  Age: 28 Year
  Sex: Female

DRUGS (10)
  1. ARIXTRA [Suspect]
     Indication: DRUG USE FOR UNKNOWN INDICATION
     Dosage: 7.5MG PER DAY
     Route: 058
     Dates: start: 20080703, end: 20080714
  2. PREVISCAN [Suspect]
     Route: 048
     Dates: start: 20080703, end: 20080714
  3. ASPIRIN [Suspect]
     Dosage: 300MG PER DAY
     Route: 048
     Dates: start: 20080627, end: 20080714
  4. NEXIUM [Concomitant]
     Route: 065
     Dates: end: 20080715
  5. FORLAX [Concomitant]
     Route: 065
     Dates: end: 20080715
  6. COVERSYL [Concomitant]
     Route: 065
     Dates: end: 20080715
  7. TAHOR [Concomitant]
     Route: 065
     Dates: end: 20080715
  8. ATARAX [Concomitant]
     Route: 065
     Dates: end: 20080715
  9. EFFEXOR [Concomitant]
     Route: 065
     Dates: end: 20080715
  10. OESTROPROGESTATIVE [Concomitant]
     Route: 065

REACTIONS (9)
  - BRAIN DEATH [None]
  - FALL [None]
  - HAEMORRHAGIC TRANSFORMATION STROKE [None]
  - HEADACHE [None]
  - INTRACRANIAL HAEMATOMA [None]
  - INTRACRANIAL PRESSURE INCREASED [None]
  - MYDRIASIS [None]
  - SOMNOLENCE [None]
  - VOMITING [None]
